FAERS Safety Report 5734756-2 (Version None)
Quarter: 2008Q2

REPORT INFORMATION
  Report Type: 
  Country: None (occurrence: None)
  Receive Date: 20080508
  Receipt Date: 20080508
  Transmission Date: 20081010
  Serious: Yes (Other)
  Sender: FDA-Public Use
  Company Number: None

PATIENT
  Age: 63 Year
  Sex: Female
  Weight: 58.9676 kg

DRUGS (1)
  1. PRO-HEALTH CREST [Suspect]
     Indication: DENTAL PLAQUE
     Dosage: TWICE DAILY
     Dates: start: 20080315, end: 20080505

REACTIONS (1)
  - TOOTHACHE [None]
